FAERS Safety Report 5524801-1 (Version None)
Quarter: 2007Q4

REPORT INFORMATION
  Report Type: 
  Country: None (occurrence: None)
  Receive Date: 20071116
  Receipt Date: 20071106
  Transmission Date: 20080405
  Serious: Yes (Congenital Anomaly)
  Sender: FDA-Public Use
  Company Number: 2007-167097-NL

PATIENT
  Age: 0 Day
  Sex: Female

DRUGS (1)
  1. MIRTAZAPINE [Suspect]
     Dosage: TRANSPLACENTAL
     Route: 064
     Dates: end: 20060405

REACTIONS (4)
  - DRUG EXPOSURE DURING PREGNANCY [None]
  - HYPERTELORISM OF ORBIT [None]
  - PSYCHOMOTOR RETARDATION [None]
  - PSYCHOMOTOR SKILLS IMPAIRED [None]
